FAERS Safety Report 5196794-0 (Version None)
Quarter: 2007Q1

REPORT INFORMATION
  Report Type: 
  Country: None (occurrence: None)
  Receive Date: 20070103
  Receipt Date: 20061227
  Transmission Date: 20070707
  Serious: Yes (Hospitalization)
  Sender: FDA-Public Use
  Company Number: PHBS2006JP19641

PATIENT
  Age: 51 Year
  Sex: Male

DRUGS (9)
  1. PARLODEL [Suspect]
     Indication: PARKINSON'S DISEASE
     Dosage: 2.5 MG/DAY
     Route: 048
     Dates: start: 20061113
  2. PARLODEL [Suspect]
     Dosage: 5 MG
     Route: 048
     Dates: start: 20061116
  3. PARLODEL [Suspect]
     Dosage: 7.5 MG/DAY
     Route: 048
     Dates: start: 20061120
  4. PARLODEL [Suspect]
     Dosage: 10 MG/DAY
     Route: 048
     Dates: start: 20061123
  5. PARLODEL [Suspect]
     Dosage: 12.5 MG/DAY
     Route: 048
     Dates: start: 20061127
  6. PARLODEL [Suspect]
     Dosage: 11.25 MG/DAY
     Route: 048
     Dates: start: 20061212
  7. FERROMIA [Concomitant]
     Dosage: 100 MG, UNK
     Route: 048
     Dates: start: 20061102
  8. NAUZELIN [Concomitant]
     Dosage: 20 MG, UNK
     Route: 048
     Dates: start: 20061113, end: 20061211
  9. PANVITAN [Concomitant]
     Dosage: 1.5 MG, UNK
     Route: 048
     Dates: start: 20061102

REACTIONS (1)
  - NEUROLEPTIC MALIGNANT SYNDROME [None]
